FAERS Safety Report 7022959-9 (Version None)
Quarter: 2010Q3

REPORT INFORMATION
  Report Type: 
  Country: None (occurrence: None)
  Receive Date: 20100930
  Receipt Date: 20100920
  Transmission Date: 20110219
  Serious: Yes (Other)
  Sender: FDA-Public Use
  Company Number: US-PURDUE-USA-2010-0047361

PATIENT
  Age: 63 Year
  Sex: Male

DRUGS (4)
  1. OXYCONTIN [Suspect]
     Indication: PRODUCT USED FOR UNKNOWN INDICATION
     Dosage: 80 MG, BID
     Dates: start: 20100917, end: 20100920
  2. HIZAAR [Concomitant]
     Indication: BLOOD PRESSURE
     Dosage: UNK MG, UNK
  3. TOPROL-XL [Concomitant]
     Indication: PALPITATIONS
     Dosage: 50 UNK, UNK
  4. ASPIRIN [Concomitant]
     Indication: PRODUCT USED FOR UNKNOWN INDICATION
     Dosage: 80 MG, UNK

REACTIONS (6)
  - EUPHORIC MOOD [None]
  - FEELING ABNORMAL [None]
  - NAUSEA [None]
  - PAIN [None]
  - SUICIDAL IDEATION [None]
  - VIOLENCE-RELATED SYMPTOM [None]
